FAERS Safety Report 21207488 (Version 1)
Quarter: 2022Q3

REPORT INFORMATION
  Report Type: Spontaneous
  Country: US (occurrence: US)
  Receive Date: 20220812
  Receipt Date: 20220812
  Transmission Date: 20221026
  Serious: Yes (Other)
  Sender: FDA-Public Use
  Company Number: US-BAYER-2022A111205

PATIENT
  Sex: Female

DRUGS (1)
  1. MIRENA [Suspect]
     Active Substance: LEVONORGESTREL
     Indication: Contraception
     Dosage: 20?G/DAY
     Route: 015
     Dates: start: 20220728, end: 20220728

REACTIONS (4)
  - Unresponsive to stimuli [Unknown]
  - Presyncope [Unknown]
  - Urinary incontinence [Unknown]
  - Complication of device insertion [None]

NARRATIVE: CASE EVENT DATE: 20220728
